FAERS Safety Report 15074973 (Version 2)
Quarter: 2023Q4

REPORT INFORMATION
  Report Type: Report from Study
  Country: US (occurrence: US)
  Receive Date: 20180627
  Receipt Date: 20231128
  Transmission Date: 20240110
  Serious: No
  Sender: FDA-Public Use
  Company Number: US-SAOL THERAPEUTICS-2017SAO01722

PATIENT
  Sex: Female
  Weight: 53.515 kg

DRUGS (9)
  1. BACLOFEN [Suspect]
     Active Substance: BACLOFEN
     Dosage: 80.10 ?G, \DAY
     Route: 037
     Dates: start: 20120207, end: 20120214
  2. BACLOFEN [Suspect]
     Active Substance: BACLOFEN
     Dosage: 60.01 ?G, \DAY
     Route: 037
     Dates: start: 20120214, end: 20120622
  3. BUPIVACAINE [Suspect]
     Active Substance: BUPIVACAINE
     Dosage: 5.367 MG, \DAY
     Route: 037
     Dates: start: 20120207, end: 20120214
  4. BUPIVACAINE [Suspect]
     Active Substance: BUPIVACAINE
     Dosage: 4.02 MG, \DAY
     Route: 037
     Dates: start: 20120214, end: 20120622
  5. DILAUDID [Suspect]
     Active Substance: HYDROMORPHONE HYDROCHLORIDE
     Dosage: 0.400 MG, \DAY
     Route: 037
     Dates: start: 20120207, end: 20120214
  6. DILAUDID [Suspect]
     Active Substance: HYDROMORPHONE HYDROCHLORIDE
     Dosage: 0.300 MG, \DAY
     Route: 037
     Dates: start: 20120214, end: 20120622
  7. DILAUDID [Suspect]
     Active Substance: HYDROMORPHONE HYDROCHLORIDE
     Dosage: 0.299 MG, \DAY
     Route: 037
     Dates: start: 20120622
  8. BUPIVACAINE [Suspect]
     Active Substance: BUPIVACAINE
     Dosage: 3.599 MG, \DAY
     Route: 037
     Dates: start: 20120622
  9. BACLOFEN [Suspect]
     Active Substance: BACLOFEN
     Dosage: 59.98 ?G, \DAY
     Route: 037
     Dates: start: 20120622

REACTIONS (2)
  - Pain [Unknown]
  - Product dose omission issue [Recovered/Resolved]

NARRATIVE: CASE EVENT DATE: 20120101
